FAERS Safety Report 6984359-7 (Version None)
Quarter: 2010Q3

REPORT INFORMATION
  Report Type: 
  Country: None (occurrence: None)
  Receive Date: 20100915
  Receipt Date: 20100902
  Transmission Date: 20110219
  Serious: Yes (Hospitalization)
  Sender: FDA-Public Use
  Company Number: US-BAYER-201033248NA

PATIENT
  Age: 38 Year
  Sex: Female
  Weight: 72 kg

DRUGS (3)
  1. YASMIN [Suspect]
     Indication: CONTRACEPTION
     Route: 048
     Dates: start: 20070401, end: 20070601
  2. IBUPROFEN [Concomitant]
     Dosage: ABOUT ONE EVERY SIX MONTHS
  3. ASCORBIC ACID [Concomitant]
     Dosage: ABOUT ONE A YEAR

REACTIONS (11)
  - ACUTE RESPIRATORY FAILURE [None]
  - COLLAPSE OF LUNG [None]
  - DISSEMINATED INTRAVASCULAR COAGULATION [None]
  - DYSPNOEA [None]
  - HAEMOPTYSIS [None]
  - HYPOXIA [None]
  - MYOCARDIAL INFARCTION [None]
  - PNEUMONITIS CHEMICAL [None]
  - PULMONARY EMBOLISM [None]
  - SEPTIC SHOCK [None]
  - THROMBOCYTOPENIA [None]
